FAERS Safety Report 6626358-0 (Version None)
Quarter: 2010Q1

REPORT INFORMATION
  Report Type: 
  Country: None (occurrence: None)
  Receive Date: 20100310
  Receipt Date: 20100223
  Transmission Date: 20100710
  Serious: Yes (Other)
  Sender: FDA-Public Use
  Company Number: US-PFIZER INC-2010024449

PATIENT
  Sex: Male
  Weight: 133.8 kg

DRUGS (5)
  1. CHANTIX [Suspect]
     Indication: SMOKING CESSATION THERAPY
     Dosage: FREQUENCY: 2X/DAY,
     Dates: end: 20100217
  2. TERAZOSIN HYDROCHLORIDE [Suspect]
  3. LISINOPRIL [Concomitant]
     Indication: BLOOD PRESSURE
  4. AMLODIPINE BESYLATE [Concomitant]
     Indication: BLOOD PRESSURE
  5. CARVEDILOL [Concomitant]
     Indication: BLOOD PRESSURE

REACTIONS (2)
  - DYSPNOEA [None]
  - THROAT TIGHTNESS [None]
